FAERS Safety Report 6359458-3 (Version None)
Quarter: 2009Q3

REPORT INFORMATION
  Report Type: 
  Country: None (occurrence: None)
  Receive Date: 20090917
  Receipt Date: 20090904
  Transmission Date: 20100115
  Serious: Yes (Death)
  Sender: FDA-Public Use
  Company Number: IN-ROCHE-654430

PATIENT
  Age: 50 Year
  Sex: Female

DRUGS (1)
  1. TAMIFLU [Suspect]
     Route: 065
     Dates: start: 20090829, end: 20090902

REACTIONS (1)
  - ACUTE RESPIRATORY DISTRESS SYNDROME [None]
